FAERS Safety Report 20738241 (Version 3)
Quarter: 2022Q2

REPORT INFORMATION
  Report Type: Other
  Country: US (occurrence: None)
  Receive Date: 20220422
  Receipt Date: 20220429
  Transmission Date: 20220721
  Serious: Yes (Death)
  Sender: FDA-Public Use
  Company Number: US-ROCHE-3079795

PATIENT
  Age: 74 Year
  Sex: Male

DRUGS (3)
  1. RITUXAN [Suspect]
     Active Substance: RITUXIMAB
     Indication: Rheumatoid arthritis
     Dosage: IV DAY 1 AND DAY 15 EVERY 6 MONTHS?DATE OF SERVICE 09/MAR/2021, 23/MAR/2021
     Route: 041
     Dates: start: 202103
  2. RITUXAN [Suspect]
     Active Substance: RITUXIMAB
     Indication: Prostate cancer
     Dosage: INFUSE 1000MG INTRAVENOUSLY ON WEEK(S) 0 AND WEEK(S) 2 EVERY 6 MONTH(S) AS DIRECTED
     Route: 041
  3. LISINOPRIL [Concomitant]
     Active Substance: LISINOPRIL

REACTIONS (1)
  - Death [Fatal]

NARRATIVE: CASE EVENT DATE: 20220304
